FAERS Safety Report 8523182 (Version 6)
Quarter: 2013Q1

REPORT INFORMATION
  Report Type: Spontaneous
  Country: US (occurrence: US)
  Receive Date: 20120420
  Receipt Date: 20130222
  Transmission Date: 20140127
  Serious: Yes (Hospitalization)
  Sender: FDA-Public Use
  Company Number: US-BIOGENIDEC-2012BI013200

PATIENT
  Age: 48 Year
  Sex: Female

DRUGS (3)
  1. AVONEX [Suspect]
     Indication: MULTIPLE SCLEROSIS
     Route: 030
     Dates: start: 19971101, end: 20011220
  2. AVONEX [Suspect]
     Indication: MULTIPLE SCLEROSIS
     Route: 030
     Dates: start: 20030801, end: 20120629
  3. MEDICATION (NOS) [Concomitant]
     Indication: CONVULSION

REACTIONS (9)
  - Intervertebral disc protrusion [Recovered/Resolved]
  - Convulsion [Recovered/Resolved with Sequelae]
  - Incision site infection [Not Recovered/Not Resolved]
  - Panic attack [Recovered/Resolved]
  - Nerve injury [Not Recovered/Not Resolved]
  - Back pain [Recovered/Resolved]
  - Post procedural complication [Not Recovered/Not Resolved]
  - Procedural haemorrhage [Not Recovered/Not Resolved]
  - Asthenia [Not Recovered/Not Resolved]
